FAERS Safety Report 14233479 (Version 2)
Quarter: 2018Q1

REPORT INFORMATION
  Report Type: Spontaneous
  Country: US (occurrence: US)
  Receive Date: 20171129
  Receipt Date: 20180131
  Transmission Date: 20180508
  Serious: Yes (Other)
  Sender: FDA-Public Use
  Company Number: US-PFIZER INC-2017510687

PATIENT
  Age: 64 Year
  Sex: Female

DRUGS (15)
  1. METFORMIN HCL [Concomitant]
     Active Substance: METFORMIN HYDROCHLORIDE
     Indication: DIABETES MELLITUS
     Dosage: 1000 MG, 2X/DAY (7 YR)
  2. RANITIDINE. [Concomitant]
     Active Substance: RANITIDINE
     Indication: DIABETES MELLITUS
     Dosage: UNK
  3. OMEPRAZOLE. [Concomitant]
     Active Substance: OMEPRAZOLE
     Indication: DIABETES MELLITUS
     Dosage: UNK
  4. IRBESARTAN. [Concomitant]
     Active Substance: IRBESARTAN
     Indication: DIABETES MELLITUS
     Dosage: UNK
  5. LYRICA [Suspect]
     Active Substance: PREGABALIN
     Indication: FIBROMYALGIA
     Dosage: 150 MG, 2X/DAY (3 YRS)
  6. LEVOTHYROXINE. [Concomitant]
     Active Substance: LEVOTHYROXINE
     Indication: DIABETES MELLITUS
     Dosage: 100 UG, 1X/DAY (7 YR)
  7. FEXOFENADINE [Concomitant]
     Active Substance: FEXOFENADINE\FEXOFENADINE HYDROCHLORIDE
     Indication: DIABETES MELLITUS
     Dosage: UNK
  8. SOMA [Concomitant]
     Active Substance: CARISOPRODOL
     Indication: DIABETES MELLITUS
     Dosage: 350 MG, 2X/DAY (7 YR)
  9. SERTRALINE HCL [Concomitant]
     Active Substance: SERTRALINE HYDROCHLORIDE
     Indication: DIABETES MELLITUS
     Dosage: UNK
  10. HYDROCHLOROTHIAZIDE. [Concomitant]
     Active Substance: HYDROCHLOROTHIAZIDE
     Indication: DIABETES MELLITUS
     Dosage: UNK
  11. METOPROLOL SUCCINATE. [Concomitant]
     Active Substance: METOPROLOL SUCCINATE
     Indication: DIABETES MELLITUS
     Dosage: UNK
  12. VIMOVO [Concomitant]
     Active Substance: ESOMEPRAZOLE MAGNESIUM\NAPROXEN
     Indication: DIABETES MELLITUS
     Dosage: UNK
  13. LANTUS [Concomitant]
     Active Substance: INSULIN GLARGINE
     Indication: DIABETES MELLITUS
     Dosage: 100 IU, 1X/DAY (AT BEDTIME; 7 YR)
  14. CRESTOR [Concomitant]
     Active Substance: ROSUVASTATIN CALCIUM
     Indication: DIABETES MELLITUS
     Dosage: UNK
  15. TRILIPIX [Concomitant]
     Active Substance: FENOFIBRIC ACID
     Indication: DIABETES MELLITUS
     Dosage: UNK

REACTIONS (4)
  - Condition aggravated [Unknown]
  - Pain [Unknown]
  - Diabetes mellitus [Unknown]
  - Malaise [Unknown]
